FAERS Safety Report 8947526 (Version 1)
Quarter: 2012Q4

REPORT INFORMATION
  Report Type: Report from Study
  Country: CA (occurrence: CA)
  Receive Date: 20121205
  Receipt Date: 20121205
  Transmission Date: 20130627
  Serious: Yes (Other)
  Sender: FDA-Public Use
  Company Number: CA-ROCHE-1150706

PATIENT
  Age: 54 None
  Sex: Male
  Weight: 68 kg

DRUGS (8)
  1. BEVACIZUMAB [Suspect]
     Indication: GLIOBLASTOMA
     Route: 042
     Dates: start: 20121003, end: 20121126
  2. TRAMADOL [Suspect]
     Indication: PRODUCT USED FOR UNKNOWN INDICATION
     Route: 065
  3. CARBAMAZEPINE [Concomitant]
  4. RANITIDINE [Concomitant]
  5. DECADRON [Concomitant]
  6. TYLENOL [Concomitant]
  7. ADVIL [Concomitant]
     Indication: MUSCULOSKELETAL STIFFNESS
  8. COLACE [Concomitant]

REACTIONS (4)
  - Fatigue [Not Recovered/Not Resolved]
  - Hepatic enzyme increased [Unknown]
  - Mean platelet volume decreased [Unknown]
  - Neoplasm [Not Recovered/Not Resolved]
